FAERS Safety Report 4510681-X (Version None)
Quarter: 2004Q4

REPORT INFORMATION
  Report Type: 
  Country: None (occurrence: None)
  Receive Date: 20041025
  Receipt Date: 20040611
  Transmission Date: 20050328
  Serious: Yes (Other)
  Sender: FDA-Public Use
  Company Number: NSADSS2002035864

PATIENT
  Age: 8 Year
  Sex: Male

DRUGS (14)
  1. REMICADE [Suspect]
     Indication: CROHN'S DISEASE
     Dosage: 200 MG, 1 IN 1 AS NECESSARY, INTRAVENOUS DRIP
     Route: 041
     Dates: start: 20021002, end: 20021002
  2. REMICADE [Suspect]
     Indication: CROHN'S DISEASE
     Dosage: 200 MG, 1 IN 1 AS NECESSARY, INTRAVENOUS DRIP
     Route: 041
     Dates: start: 19991111
  3. REMICADE [Suspect]
     Indication: CROHN'S DISEASE
     Dosage: 200 MG, 1 IN 1 AS NECESSARY, INTRAVENOUS DRIP
     Route: 041
     Dates: start: 20020807
  4. REMICADE [Suspect]
  5. MERCAPTOPURINE [Concomitant]
  6. STEROIDS (CORTICOSTEROID NOS) [Concomitant]
  7. PENTASA [Concomitant]
  8. SOLU-MEDROL [Concomitant]
  9. BENADRYL [Concomitant]
  10. TYLENOL [Concomitant]
  11. FOLIC ACID [Concomitant]
  12. IRON (IRON) [Concomitant]
  13. PEDIPRED (CORTICOSTEROID NOS) [Concomitant]
  14. PRILOSEC [Concomitant]

REACTIONS (8)
  - ANAPHYLACTIC REACTION [None]
  - ARTHRITIS [None]
  - DIARRHOEA HAEMORRHAGIC [None]
  - ENCEPHALITIS [None]
  - FLUSHING [None]
  - HEADACHE [None]
  - MYCOPLASMA INFECTION [None]
  - VOMITING [None]
